FAERS Safety Report 5054022-0 (Version None)
Quarter: 2006Q3

REPORT INFORMATION
  Report Type: 
  Country: None (occurrence: None)
  Receive Date: 20060713
  Receipt Date: 20060705
  Transmission Date: 20061208
  Serious: Yes (Death, Hospitalization, Other)
  Sender: FDA-Public Use
  Company Number: 2006-01629

PATIENT
  Age: 66 Year
  Sex: Male

DRUGS (8)
  1. VELCADE [Suspect]
     Indication: MULTIPLE MYELOMA
     Dates: start: 20050501, end: 20060613
  2. DEXAMETHASONE [Suspect]
     Dates: start: 20050501, end: 20060605
  3. BACTRIM [Concomitant]
  4. NEXIUM [Concomitant]
  5. AMITRIPTYLINE HCL [Concomitant]
  6. SIMVASTATIN [Concomitant]
  7. NYSTATIN [Concomitant]
  8. VALCICLOVIR [Concomitant]

REACTIONS (9)
  - BRONCHIOLITIS [None]
  - CONDITION AGGRAVATED [None]
  - HERPES ZOSTER [None]
  - INFLUENZA [None]
  - PNEUMONIA [None]
  - PNEUMONITIS [None]
  - PULMONARY TOXICITY [None]
  - RESPIRATORY FAILURE [None]
  - VIRAL INFECTION [None]
